FAERS Safety Report 25632264 (Version 3)
Quarter: 2025Q3

REPORT INFORMATION
  Report Type: Report from Study
  Country: BR (occurrence: BR)
  Receive Date: 20250801
  Receipt Date: 20250902
  Transmission Date: 20251021
  Serious: Yes (Other)
  Sender: NOVARTIS
  Company Number: BR-002147023-NVSC2025BR121384

PATIENT
  Sex: Female
  Weight: 90 kg

DRUGS (3)
  1. COSENTYX [Suspect]
     Active Substance: SECUKINUMAB
     Indication: Psoriasis
     Route: 065
  2. METHOTREXATE [Concomitant]
     Active Substance: METHOTREXATE
     Indication: Psoriasis
     Route: 065
  3. CYANOCOBALAMIN\DICLOFENAC SODIUM\PYRIDOXINE HYDROCHLORIDE\THIAMINE MON [Concomitant]
     Active Substance: CYANOCOBALAMIN\DICLOFENAC SODIUM\PYRIDOXINE HYDROCHLORIDE\THIAMINE MONONITRATE
     Indication: Psoriasis
     Route: 065

REACTIONS (32)
  - Diabetes mellitus [Unknown]
  - Syncope [Unknown]
  - Arrhythmia [Unknown]
  - Visual impairment [Unknown]
  - Pain [Unknown]
  - Malaise [Unknown]
  - Labyrinthitis [Unknown]
  - Anxiety [Not Recovered/Not Resolved]
  - Fatigue [Unknown]
  - Myalgia [Unknown]
  - Injection site pain [Unknown]
  - Glucose tolerance impaired [Unknown]
  - Diabetic wound [Unknown]
  - Impaired healing [Unknown]
  - Nausea [Not Recovered/Not Resolved]
  - Dizziness [Not Recovered/Not Resolved]
  - Insomnia [Not Recovered/Not Resolved]
  - Concomitant disease aggravated [Unknown]
  - Gait disturbance [Unknown]
  - Decreased appetite [Unknown]
  - Abdominal pain upper [Unknown]
  - Gastritis [Unknown]
  - Headache [Unknown]
  - Vertigo [Recovering/Resolving]
  - Hypertension [Unknown]
  - Movement disorder [Recovering/Resolving]
  - Dyspnoea [Unknown]
  - Tendon disorder [Unknown]
  - Sinusitis [Unknown]
  - Inflammation [Unknown]
  - Slow speech [Unknown]
  - Weight decreased [Unknown]
